FAERS Safety Report 24288592 (Version 1)
Quarter: 2024Q3

REPORT INFORMATION
  Report Type: Spontaneous
  Country: TR (occurrence: TR)
  Receive Date: 20240906
  Receipt Date: 20240906
  Transmission Date: 20241017
  Serious: Yes (Hospitalization)
  Sender: BOEHRINGER INGELHEIM
  Company Number: TR-BoehringerIngelheim-2024-BI-048751

PATIENT
  Age: 29 Year
  Sex: Male

DRUGS (4)
  1. EMPAGLIFLOZIN [Suspect]
     Active Substance: EMPAGLIFLOZIN
     Indication: Neutropenia
  2. GRANULOCYTE COLONY-STIMULATING FACTOR NOS [Concomitant]
     Active Substance: GRANULOCYTE COLONY-STIMULATING FACTOR NOS
     Indication: Product used for unknown indication
     Route: 058
  3. IGRT [Concomitant]
     Indication: Product used for unknown indication
  4. FOSFOMYCIN [Concomitant]
     Active Substance: FOSFOMYCIN
     Indication: Product used for unknown indication

REACTIONS (7)
  - Emphysematous pyelonephritis [Recovered/Resolved]
  - Enterococcal infection [Unknown]
  - Escherichia infection [Unknown]
  - Bacteriuria [Unknown]
  - Urinary tract infection [Unknown]
  - Pyuria [Unknown]
  - Intentional product use issue [Unknown]
